FAERS Safety Report 21515043 (Version 1)
Quarter: 2022Q4

REPORT INFORMATION
  Report Type: Spontaneous
  Country: DE (occurrence: DE)
  Receive Date: 20221027
  Receipt Date: 20221027
  Transmission Date: 20230113
  Serious: Yes (Other)
  Sender: FDA-Public Use
  Company Number: DE-NOVARTISPH-NVSC2022DE240013

PATIENT
  Sex: Female

DRUGS (2)
  1. VIGAMOX [Suspect]
     Active Substance: MOXIFLOXACIN HYDROCHLORIDE
     Indication: Eye haemorrhage
     Dosage: 1 DRP, QH
     Route: 047
     Dates: start: 20221017, end: 20221017
  2. VIGAMOX [Suspect]
     Active Substance: MOXIFLOXACIN HYDROCHLORIDE
     Dosage: 1 DRP (6X, DAILY)
     Route: 047
     Dates: start: 20221018, end: 20221019

REACTIONS (7)
  - Keratorhexis [Unknown]
  - Ulcerative keratitis [Unknown]
  - Cardiovascular disorder [Unknown]
  - Nausea [Unknown]
  - Vomiting [Unknown]
  - Drug ineffective [Unknown]
  - Inappropriate schedule of product administration [Recovered/Resolved]

NARRATIVE: CASE EVENT DATE: 20221001
